FAERS Safety Report 8197354-X (Version None)
Quarter: 2012Q1

REPORT INFORMATION
  Report Type: 
  Country: None (occurrence: None)
  Receive Date: 20120309
  Receipt Date: 20120228
  Transmission Date: 20120608
  Serious: Yes (Hospitalization)
  Sender: FDA-Public Use
  Company Number: AU-JNJFOC-20120214586

PATIENT
  Sex: Female
  Weight: 3.51 kg

DRUGS (5)
  1. REMICADE [Suspect]
     Indication: FOETAL EXPOSURE DURING PREGNANCY
     Route: 064
     Dates: start: 20101126
  2. REMICADE [Suspect]
     Route: 064
     Dates: start: 20110624
  3. REMICADE [Suspect]
     Route: 064
     Dates: start: 20111209
  4. IMURAN [Concomitant]
     Route: 064
  5. LEVOTHYROXINE SODIUM [Concomitant]
     Route: 064

REACTIONS (3)
  - JAUNDICE [None]
  - PREMATURE BABY [None]
  - MATERNAL DRUGS AFFECTING FOETUS [None]
